FAERS Safety Report 12190132 (Version 1)
Quarter: 2016Q1

REPORT INFORMATION
  Report Type: Spontaneous
  Country: US (occurrence: None)
  Receive Date: 20160317
  Receipt Date: 20160317
  Transmission Date: 20160526
  Serious: Yes (Other)
  Sender: FDA-Public Use
  Company Number: None

PATIENT
  Age: 65 Year
  Sex: Female
  Weight: 72.58 kg

DRUGS (15)
  1. NITROSTAT [Concomitant]
     Active Substance: NITROGLYCERIN
  2. CENTRUM SILVER [Concomitant]
     Active Substance: MINERALS\VITAMINS
  3. CLONIDINE. [Concomitant]
     Active Substance: CLONIDINE
  4. VITAMIN D [Concomitant]
     Active Substance: CHOLECALCIFEROL
  5. PREMARIN [Concomitant]
     Active Substance: ESTROGENS, CONJUGATED
  6. CLOPIDOGREL [Concomitant]
     Active Substance: CLOPIDOGREL BISULFATE
  7. WALK WITH A CANE (HIP REPLACEMENT) [Concomitant]
  8. LUTEIN [Concomitant]
     Active Substance: LUTEIN
  9. CLOPIDOGREL [Suspect]
     Active Substance: CLOPIDOGREL BISULFATE
     Indication: ARTERIAL THERAPEUTIC PROCEDURE
     Dosage: 1 ONCE DAILY TAKEN BY MOUTH
     Route: 048
     Dates: start: 20151230, end: 20160316
  10. CAPTOPRIL. [Concomitant]
     Active Substance: CAPTOPRIL
  11. ATOVASTATIN [Concomitant]
     Active Substance: ATORVASTATIN
  12. TRAMADOL. [Concomitant]
     Active Substance: TRAMADOL
  13. ZYRTEC [Concomitant]
     Active Substance: CETIRIZINE HYDROCHLORIDE
  14. GLIMEPIRIDE. [Concomitant]
     Active Substance: GLIMEPIRIDE
  15. HYDROCHLOROT [Concomitant]
     Active Substance: HYDROCHLOROTHIAZIDE

REACTIONS (3)
  - Tooth loss [None]
  - Tooth fracture [None]
  - Tooth disorder [None]
